FAERS Safety Report 18230831 (Version 1)
Quarter: 2020Q3

REPORT INFORMATION
  Report Type: Spontaneous
  Country: PT (occurrence: PT)
  Receive Date: 20200904
  Receipt Date: 20200904
  Transmission Date: 20201103
  Serious: Yes (Hospitalization, Other)
  Sender: FDA-Public Use
  Company Number: PT-009507513-2008PRT013943

PATIENT
  Age: 20 Year
  Sex: Female

DRUGS (1)
  1. IMPLANON NXT [Suspect]
     Active Substance: ETONOGESTREL
     Dosage: 1 DOSAGE FORM
     Route: 058

REACTIONS (6)
  - Endocarditis bacterial [Recovered/Resolved]
  - Implant site infection [Recovered/Resolved]
  - Bacteraemia [Recovered/Resolved]
  - Streptococcal infection [Recovered/Resolved]
  - Infective aneurysm [Recovered/Resolved]
  - Skin bacterial infection [Recovered/Resolved]
